FAERS Safety Report 24949767 (Version 1)
Quarter: 2025Q1

REPORT INFORMATION
  Report Type: Spontaneous
  Country: US (occurrence: US)
  Receive Date: 20250210
  Receipt Date: 20250210
  Transmission Date: 20250409
  Serious: Yes (Other)
  Sender: ELI LILLY AND COMPANY
  Company Number: US-ELI_LILLY_AND_COMPANY-US202501021855

PATIENT
  Sex: Female

DRUGS (1)
  1. STRATTERA [Suspect]
     Active Substance: ATOMOXETINE HYDROCHLORIDE
     Indication: Attention deficit hyperactivity disorder
     Dosage: 200 MG, DAILY
     Route: 065

REACTIONS (9)
  - Blindness [Unknown]
  - Rosacea [Unknown]
  - Visual impairment [Unknown]
  - Arthropathy [Unknown]
  - Overdose [Unknown]
  - Hypersensitivity [Unknown]
  - Rash macular [Unknown]
  - Drug hypersensitivity [Unknown]
  - Drug effect less than expected [Unknown]
